FAERS Safety Report 9028641 (Version 1)
Quarter: 2013Q1

REPORT INFORMATION
  Report Type: Spontaneous
  Country: IT (occurrence: IT)
  Receive Date: 20130124
  Receipt Date: 20130124
  Transmission Date: 20140127
  Serious: Yes (Hospitalization)
  Sender: FDA-Public Use
  Company Number: IT-SANOFI-AVENTIS-2013SA005152

PATIENT
  Age: 81 Year
  Sex: Male

DRUGS (9)
  1. SOLOSA [Suspect]
     Indication: PRODUCT USED FOR UNKNOWN INDICATION
     Route: 048
     Dates: start: 20050101, end: 20121215
  2. TAVANIC [Suspect]
     Indication: BRONCHITIS
     Route: 048
     Dates: start: 20121212, end: 20121215
  3. TAREG [Concomitant]
     Dosage: STRENGTH: 160 MG
  4. LOPRESOR [Concomitant]
     Dosage: STRENGTH: 100 MG
  5. TORVAST [Concomitant]
     Dosage: STRENGTH: 20 MG
  6. PROSTIDE [Concomitant]
     Dosage: STRENGTH: 5 MG
  7. UNOPROST [Concomitant]
     Dosage: STRENGTH: 5 MG
  8. SINTROM [Concomitant]
     Dosage: STRENGTH: 1 MG
  9. LANSOX [Concomitant]
     Dosage: STRENGTH: 15 MG

REACTIONS (4)
  - Facial asymmetry [Recovering/Resolving]
  - Hypoglycaemia [Recovering/Resolving]
  - Diplopia [Recovering/Resolving]
  - Dysarthria [Recovering/Resolving]
